FAERS Safety Report 6044910-0 (Version None)
Quarter: 2009Q1

REPORT INFORMATION
  Report Type: 
  Country: None (occurrence: None)
  Receive Date: 20090116
  Receipt Date: 20090116
  Transmission Date: 20090719
  Serious: Yes (Other)
  Sender: FDA-Public Use
  Company Number: None

PATIENT
  Age: 51 Year
  Sex: Female
  Weight: 54.4316 kg

DRUGS (1)
  1. CAMPRAL [Suspect]
     Indication: ALCOHOLISM
     Dosage: 2 3X DAY PO
     Route: 048

REACTIONS (4)
  - ABDOMINAL PAIN [None]
  - CHILLS [None]
  - DIARRHOEA [None]
  - HEADACHE [None]
